FAERS Safety Report 14224688 (Version 1)
Quarter: 2017Q4

REPORT INFORMATION
  Report Type: Spontaneous
  Country: US (occurrence: US)
  Receive Date: 20171127
  Receipt Date: 20171127
  Transmission Date: 20180321
  Serious: No
  Sender: FDA-Public Use
  Company Number: US-B.I. PHARMACEUTICALS,INC./RIDGEFIELD-2017-BI-062586

PATIENT
  Sex: Female

DRUGS (1)
  1. CATAPRES [Suspect]
     Active Substance: CLONIDINE HYDROCHLORIDE
     Indication: ANGER
     Dosage: FORM STRENGTH: 0.2 MG; FORMULATION: TABLET? ADMINISTRATION CORRECT? NR(NOT REPORTED)  ?ACTION(S) TA
     Route: 048

REACTIONS (2)
  - Sedation [Recovered/Resolved]
  - Off label use [Recovered/Resolved]
